FAERS Safety Report 6221637-3 (Version None)
Quarter: 2009Q2

REPORT INFORMATION
  Report Type: 
  Country: None (occurrence: None)
  Receive Date: 20090608
  Receipt Date: 20090528
  Transmission Date: 20091009
  Serious: Yes (Other)
  Sender: FDA-Public Use
  Company Number: AU-WYE-H09507809

PATIENT
  Age: 63 Year
  Sex: Male

DRUGS (4)
  1. TEMSIROLIMUS (TEMSIROLIMUS, CONCENTRATE FOR SOLUTION FOR INFUSION) LOT [Suspect]
     Indication: RENAL CELL CARCINOMA
     Dosage: 25 MG 1X PER 1 WK; INTRAVENOUS, 20 MG 1X PER 1 WK; INTRAVENOUS, 15 MG 1X PER 1 WK; INTRAVENOUS
     Route: 042
     Dates: start: 20090211, end: 20090318
  2. TEMSIROLIMUS (TEMSIROLIMUS, CONCENTRATE FOR SOLUTION FOR INFUSION) LOT [Suspect]
     Indication: RENAL CELL CARCINOMA
     Dosage: 25 MG 1X PER 1 WK; INTRAVENOUS, 20 MG 1X PER 1 WK; INTRAVENOUS, 15 MG 1X PER 1 WK; INTRAVENOUS
     Route: 042
     Dates: start: 20090408, end: 20090422
  3. TEMSIROLIMUS (TEMSIROLIMUS, CONCENTRATE FOR SOLUTION FOR INFUSION) LOT [Suspect]
     Indication: RENAL CELL CARCINOMA
     Dosage: 25 MG 1X PER 1 WK; INTRAVENOUS, 20 MG 1X PER 1 WK; INTRAVENOUS, 15 MG 1X PER 1 WK; INTRAVENOUS
     Route: 042
     Dates: start: 20090520, end: 20090527
  4. BEVACIZUMAB, TEST ARTICLE IN TEMSIROLIMUS STUDY (BEVACIZUMAB, INJECTIO [Suspect]
     Indication: RENAL CELL CARCINOMA
     Dosage: 10 MG/KG 1X PER 2 WK; INTRAVENOUS
     Route: 042
     Dates: start: 20090211

REACTIONS (1)
  - INTERSTITIAL LUNG DISEASE [None]
